FAERS Safety Report 4523739-6 (Version None)
Quarter: 2004Q4

REPORT INFORMATION
  Report Type: 
  Country: None (occurrence: None)
  Receive Date: 20041119
  Receipt Date: 20041005
  Transmission Date: 20050328
  Serious: No
  Sender: FDA-Public Use
  Company Number: PHEH2004US09322

PATIENT
  Age: 53 Year
  Sex: Female
  Weight: 61.2 kg

DRUGS (9)
  1. ZELNORM [Suspect]
     Indication: IRRITABLE BOWEL SYNDROME
     Dosage: 6 MG, BID, ORAL
     Route: 048
     Dates: start: 20031001
  2. NORVASC [Suspect]
     Indication: HYPERTENSION
  3. ACCUPRIL [Suspect]
     Indication: HYPERTENSION
  4. NEXIUM [Concomitant]
  5. VIOXX [Concomitant]
  6. DETROL (TOLTERODINE) [Concomitant]
  7. TAGAMET [Concomitant]
  8. XANAX [Concomitant]
  9. ELAVIL [Concomitant]

REACTIONS (1)
  - URTICARIA [None]
